FAERS Safety Report 12603445 (Version 1)
Quarter: 2016Q3

REPORT INFORMATION
  Report Type: Spontaneous
  Country: FR (occurrence: FR)
  Receive Date: 20160728
  Receipt Date: 20160728
  Transmission Date: 20161109
  Serious: Yes (Hospitalization)
  Sender: FDA-Public Use
  Company Number: FR-PFIZER INC-2016355713

PATIENT
  Age: 86 Year
  Sex: Female

DRUGS (11)
  1. TAHOR [Suspect]
     Active Substance: ATORVASTATIN CALCIUM
     Indication: DIABETIC DYSLIPIDAEMIA
     Dosage: 80 MG, 1X/DAY
     Route: 048
     Dates: start: 20160312, end: 20160410
  2. RASILEZ HCT [Concomitant]
     Active Substance: ALISKIREN\HYDROCHLOROTHIAZIDE
  3. NOVONORM [Concomitant]
     Active Substance: REPAGLINIDE
  4. LORAZEPAM. [Concomitant]
     Active Substance: LORAZEPAM
  5. LYRICA [Concomitant]
     Active Substance: PREGABALIN
  6. FORLAX [Concomitant]
     Active Substance: POLYETHYLENE GLYCOL 4000
  7. DAFALGAN [Concomitant]
     Active Substance: ACETAMINOPHEN
  8. PROCORALAN [Concomitant]
     Active Substance: IVABRADINE
  9. OMEPRAZOLE. [Concomitant]
     Active Substance: OMEPRAZOLE
  10. LEVOTHYROX [Concomitant]
     Active Substance: LEVOTHYROXINE
  11. ASPEGIC [Concomitant]
     Active Substance: ASPIRIN DL-LYSINE

REACTIONS (2)
  - Eosinophilia [Recovered/Resolved]
  - Hepatitis cholestatic [Recovering/Resolving]

NARRATIVE: CASE EVENT DATE: 20160406
